FAERS Safety Report 8382752-1 (Version None)
Quarter: 2012Q2

REPORT INFORMATION
  Report Type: 
  Country: None (occurrence: None)
  Receive Date: 20120524
  Receipt Date: 20120514
  Transmission Date: 20120825
  Serious: Yes (Hospitalization)
  Sender: FDA-Public Use
  Company Number: JP-NOVOPROD-351554

PATIENT
  Age: 85 Year
  Sex: Female

DRUGS (7)
  1. SIGMART [Concomitant]
  2. NORDITROPIN [Suspect]
     Indication: GROWTH HORMONE DEFICIENCY
     Dosage: UNKNOWN/SC
     Route: 058
     Dates: start: 20091201, end: 20120503
  3. RABEPRAZOLE SODIUM [Concomitant]
  4. NORDITROPIN [Suspect]
     Dosage: UNK
     Route: 058
     Dates: start: 20120507
  5. RISPERDAL [Concomitant]
  6. LEVOTHYROXINE SODIUM [Concomitant]
  7. CORTRIL                            /00028601/ [Concomitant]

REACTIONS (2)
  - NEOPLASM PROGRESSION [None]
  - BENIGN GASTROINTESTINAL NEOPLASM [None]
